FAERS Safety Report 6065720-4 (Version None)
Quarter: 2009Q1

REPORT INFORMATION
  Report Type: 
  Country: None (occurrence: None)
  Receive Date: 20090202
  Receipt Date: 20090128
  Transmission Date: 20090719
  Serious: Yes (Other)
  Sender: FDA-Public Use
  Company Number: A0765586A

PATIENT
  Age: 100 Year
  Sex: Female

DRUGS (2)
  1. UREA PEROXIDE [Suspect]
     Indication: CERUMEN REMOVAL
     Dosage: AURAL
     Route: 001
     Dates: start: 20090127, end: 20090128
  2. LATANOPROST [Concomitant]

REACTIONS (1)
  - DEAFNESS [None]
